FAERS Safety Report 20634017 (Version 2)
Quarter: 2022Q2

REPORT INFORMATION
  Report Type: Report from Study
  Country: US (occurrence: US)
  Receive Date: 20220324
  Receipt Date: 20220406
  Transmission Date: 20220721
  Serious: No
  Sender: FDA-Public Use
  Company Number: US-BRISTOL-MYERS SQUIBB COMPANY-2022-010714

PATIENT
  Age: 86 Year
  Sex: Female
  Weight: 68 kg

DRUGS (4)
  1. ELIQUIS [Suspect]
     Active Substance: APIXABAN
     Indication: Deep vein thrombosis
     Route: 048
     Dates: start: 20220311
  2. NORVASC [Suspect]
     Active Substance: AMLODIPINE BESYLATE
     Indication: Product used for unknown indication
     Route: 065
  3. TOPROL XL [Suspect]
     Active Substance: METOPROLOL SUCCINATE
     Indication: Product used for unknown indication
     Route: 065
  4. METFORMIN [Suspect]
     Active Substance: METFORMIN HYDROCHLORIDE
     Indication: Product used for unknown indication
     Route: 065

REACTIONS (1)
  - Dysuria [Unknown]

NARRATIVE: CASE EVENT DATE: 20220301
